FAERS Safety Report 8338953-1 (Version None)
Quarter: 2012Q2

REPORT INFORMATION
  Report Type: 
  Country: None (occurrence: None)
  Receive Date: 20120507
  Receipt Date: 20120430
  Transmission Date: 20120825
  Serious: Yes (Death, Other)
  Sender: FDA-Public Use
  Company Number: US-BRISTOL-MYERS SQUIBB COMPANY-16403107

PATIENT
  Age: 56 Year
  Sex: Female
  Weight: 105 kg

DRUGS (9)
  1. VICODIN [Concomitant]
     Indication: ANALGESIC THERAPY
     Dates: start: 20110808
  2. ZOFRAN [Concomitant]
     Indication: ANTIEMETIC SUPPORTIVE CARE
     Dates: start: 20100920
  3. DECADRON [Concomitant]
     Indication: ANTIEMETIC SUPPORTIVE CARE
     Dates: start: 20120202, end: 20120202
  4. ATIVAN [Concomitant]
     Dates: start: 20100920
  5. DOCETAXEL [Concomitant]
     Dates: start: 20110208, end: 20110321
  6. CARBOPLATIN [Suspect]
     Indication: NON-SMALL CELL LUNG CANCER
     Dosage: 1DF=AUC 5 ON DAY 1 IT LAST DOSE:25OCT2010 2NS LINE TRT:15NOV-20DEC10
     Route: 042
     Dates: start: 20100823, end: 20101108
  7. GEMZAR [Suspect]
     Indication: NON-SMALL CELL LUNG CANCER
     Dosage: LAST DOSE:1NOV2010 4CYCLES
     Route: 042
     Dates: start: 20100823, end: 20101108
  8. ALOXI [Concomitant]
     Indication: ANTIEMETIC SUPPORTIVE CARE
     Dates: start: 20120202, end: 20120202
  9. ERBITUX [Suspect]
     Indication: NON-SMALL CELL LUNG CANCER
     Dosage: 250MG/M2 ON DAY 1.DAY 8 + 15 FROM 30AUG10 LAST DOSE:1NOV2010(64DYS) INF:9 4CYCLES
     Route: 042
     Dates: start: 20100823, end: 20101108

REACTIONS (1)
  - ACUTE MYELOMONOCYTIC LEUKAEMIA [None]
